FAERS Safety Report 8414030-6 (Version None)
Quarter: 2012Q2

REPORT INFORMATION
  Report Type: 
  Country: None (occurrence: None)
  Receive Date: 20120605
  Receipt Date: 20120530
  Transmission Date: 20120825
  Serious: No
  Sender: FDA-Public Use
  Company Number: US-PFIZER INC-2012079660

PATIENT
  Sex: Female

DRUGS (2)
  1. PREMARIN [Suspect]
     Indication: VULVOVAGINAL DRYNESS
     Dosage: UNK
     Dates: start: 20120307, end: 20120301
  2. PREMARIN [Suspect]
     Indication: VULVOVAGINAL DISCOMFORT

REACTIONS (8)
  - ANXIETY [None]
  - PELVIC PAIN [None]
  - VULVOVAGINAL BURNING SENSATION [None]
  - EMOTIONAL DISORDER [None]
  - VULVOVAGINAL DISCOMFORT [None]
  - PAIN [None]
  - INSOMNIA [None]
  - FEAR [None]
